FAERS Safety Report 19006983 (Version 1)
Quarter: 2021Q1

REPORT INFORMATION
  Report Type: Spontaneous
  Country: US (occurrence: US)
  Receive Date: 20210313
  Receipt Date: 20210313
  Transmission Date: 20210420
  Serious: Yes (Hospitalization, Disabling)
  Sender: FDA-Public Use
  Company Number: None

PATIENT
  Age: 21 Year
  Sex: Female

DRUGS (1)
  1. ETONOGESIREL/ETHINYL ESTRADIOL VAGINAL RING [Suspect]
     Active Substance: ETHINYL ESTRADIOL\ETONOGESTREL
     Indication: CONTRACEPTION
     Dates: start: 20200701, end: 20200710

REACTIONS (6)
  - Monoplegia [None]
  - Pain in extremity [None]
  - Gait disturbance [None]
  - Hypoaesthesia [None]
  - Asthenia [None]
  - Chest pain [None]

NARRATIVE: CASE EVENT DATE: 20200710
